FAERS Safety Report 13477719 (Version 1)
Quarter: 2017Q2

REPORT INFORMATION
  Report Type: Spontaneous
  Country: DE (occurrence: DE)
  Receive Date: 20170425
  Receipt Date: 20170425
  Transmission Date: 20170830
  Serious: Yes (Other)
  Sender: FDA-Public Use
  Company Number: DE-PFIZER INC-2017177840

PATIENT
  Sex: Male

DRUGS (1)
  1. RAMILICH [Suspect]
     Active Substance: RAMIPRIL
     Dosage: UNK
     Route: 048

REACTIONS (2)
  - Blood urine present [Not Recovered/Not Resolved]
  - Pruritus [Not Recovered/Not Resolved]
